FAERS Safety Report 15191815 (Version 1)
Quarter: 2018Q3

REPORT INFORMATION
  Report Type: Spontaneous
  Country: US (occurrence: US)
  Receive Date: 20180625
  Receipt Date: 20180625
  Transmission Date: 20181010
  Serious: No
  Sender: FDA-Public Use
  Company Number: None

PATIENT
  Age: 77 Year
  Sex: Female

DRUGS (1)
  1. ADEMPAS [Suspect]
     Active Substance: RIOCIGUAT
     Indication: PULMONARY HYPERTENSION
     Route: 048
     Dates: start: 20180615

REACTIONS (6)
  - Cough [None]
  - Confusional state [None]
  - Dyspepsia [None]
  - Headache [None]
  - Dizziness [None]
  - Oxygen saturation decreased [None]

NARRATIVE: CASE EVENT DATE: 20180615
